FAERS Safety Report 6861501-X (Version None)
Quarter: 2010Q3

REPORT INFORMATION
  Report Type: 
  Country: None (occurrence: None)
  Receive Date: 20100720
  Receipt Date: 20100720
  Transmission Date: 20110219
  Serious: No
  Sender: FDA-Public Use
  Company Number: None

PATIENT
  Age: 54 Year
  Sex: Female
  Weight: 58.9676 kg

DRUGS (1)
  1. SYNOVIUM PAIN RELIEVING GEL [Suspect]
     Indication: PAIN IN EXTREMITY
     Dosage: THIN LAYER APPLIED ONCE TOP
     Route: 061
     Dates: start: 20100718, end: 20100718

REACTIONS (2)
  - ERYTHEMA [None]
  - PAIN [None]
